FAERS Safety Report 9919670 (Version 1)
Quarter: 2014Q1

REPORT INFORMATION
  Report Type: Spontaneous
  Country: US (occurrence: US)
  Receive Date: 20140224
  Receipt Date: 20140224
  Transmission Date: 20141002
  Serious: Yes (Death, Other)
  Sender: FDA-Public Use
  Company Number: PHHY2014US020667

PATIENT
  Age: 11 Year
  Sex: Male

DRUGS (2)
  1. CICLOSPORIN [Suspect]
     Indication: IMMUNOSUPPRESSION
  2. ECULIZUMAB [Suspect]
     Indication: THROMBOTIC MICROANGIOPATHY
     Dosage: 900 MG, UNK

REACTIONS (14)
  - Multi-organ failure [Fatal]
  - Renal failure acute [Fatal]
  - Urine protein/creatinine ratio increased [Fatal]
  - Thrombotic microangiopathy [Fatal]
  - Glomerular filtration rate decreased [Fatal]
  - Intestinal haemorrhage [Unknown]
  - Adenovirus infection [Unknown]
  - BK virus infection [Unknown]
  - Herpes simplex [Unknown]
  - Graft versus host disease in skin [Unknown]
  - Acute graft versus host disease in intestine [Unknown]
  - Pericardial effusion [Unknown]
  - Complement factor increased [Unknown]
  - Hypertension [Unknown]
